FAERS Safety Report 8485384-X (Version None)
Quarter: 2012Q3

REPORT INFORMATION
  Report Type: 
  Country: None (occurrence: None)
  Receive Date: 20120703
  Receipt Date: 20120619
  Transmission Date: 20120928
  Serious: Yes (Hospitalization, Other)
  Sender: FDA-Public Use
  Company Number: TW-CELGENEUS-153-50794-11090331

PATIENT
  Sex: Male
  Weight: 85.4 kg

DRUGS (7)
  1. ACETAMINOPHEN [Concomitant]
     Indication: PROPHYLAXIS
     Dosage: 500 MILLIGRAM
     Route: 065
     Dates: start: 20110722
  2. VIDAZA [Suspect]
     Dosage: 165 MILLIGRAM/SQ. METER
     Route: 058
     Dates: start: 20110822, end: 20110830
  3. VIDAZA [Suspect]
     Dosage: 165 MILLIGRAM/SQ. METER
     Route: 058
     Dates: start: 20120319
  4. SULFISOXAZOLE [Concomitant]
     Indication: CONJUNCTIVITIS
     Route: 047
     Dates: start: 20110826
  5. ZOLPIDEM [Concomitant]
     Dosage: 10 MILLIGRAM
     Route: 065
     Dates: start: 20110819
  6. VIDAZA [Suspect]
     Indication: REFRACTORY ANAEMIA WITH AN EXCESS OF BLASTS
     Route: 058
     Dates: start: 20110725
  7. VIDAZA [Suspect]
     Dosage: 165 MILLIGRAM/SQ. METER
     Route: 058
     Dates: start: 20120220

REACTIONS (4)
  - LEUKOPENIA [None]
  - PHARYNGITIS [None]
  - FEBRILE NEUTROPENIA [None]
  - SPLENIC ABSCESS [None]
